FAERS Safety Report 10842225 (Version 1)
Quarter: 2015Q1

REPORT INFORMATION
  Report Type: Spontaneous
  Country: US (occurrence: US)
  Receive Date: 20150220
  Receipt Date: 20150220
  Transmission Date: 20150721
  Serious: Yes (Other)
  Sender: FDA-Public Use
  Company Number: US-WATSON-2015-02762

PATIENT
  Sex: Male

DRUGS (3)
  1. ANDROGEL [Suspect]
     Active Substance: TESTOSTERONE
     Indication: BLOOD TESTOSTERONE DECREASED
     Dosage: UNK, UNKNOWN
     Route: 065
     Dates: start: 201104, end: 201305
  2. ANDROGEL [Suspect]
     Active Substance: TESTOSTERONE
     Dosage: UNK, UNKNOWN
     Route: 065
     Dates: start: 200902, end: 200909
  3. ANDRODERM [Suspect]
     Active Substance: TESTOSTERONE
     Indication: BLOOD TESTOSTERONE DECREASED
     Dosage: UNK, UNKNOWN
     Route: 062
     Dates: start: 201202

REACTIONS (3)
  - Transient ischaemic attack [Unknown]
  - Arteriosclerosis coronary artery [Unknown]
  - Pain [Unknown]

NARRATIVE: CASE EVENT DATE: 20130320
